FAERS Safety Report 25919185 (Version 2)
Quarter: 2025Q4

REPORT INFORMATION
  Report Type: Report from Study
  Country: EU (occurrence: EU)
  Receive Date: 20251014
  Receipt Date: 20251115
  Transmission Date: 20260118
  Serious: Yes (Other)
  Sender: ACCORD
  Company Number: EU-Accord-508481

PATIENT

DRUGS (3)
  1. AZACITIDINE [Suspect]
     Active Substance: AZACITIDINE
     Indication: T-cell lymphoma
  2. VIDAZA [Suspect]
     Active Substance: AZACITIDINE
     Indication: T-cell lymphoma
  3. AZACITIDINE [Suspect]
     Active Substance: AZACITIDINE
     Indication: T-cell lymphoma

REACTIONS (3)
  - Oral candidiasis [Unknown]
  - Cytomegalovirus infection reactivation [Unknown]
  - Oesophageal candidiasis [Unknown]
